FAERS Safety Report 15076948 (Version 1)
Quarter: 2018Q2

REPORT INFORMATION
  Report Type: Spontaneous
  Country: US (occurrence: US)
  Receive Date: 20180627
  Receipt Date: 20180627
  Transmission Date: 20180711
  Serious: Yes (Hospitalization, Other)
  Sender: FDA-Public Use
  Company Number: US-OTSUKA-2018_013184

PATIENT
  Sex: Female

DRUGS (3)
  1. ABILIFY [Suspect]
     Active Substance: ARIPIPRAZOLE
     Indication: BIPOLAR DISORDER
     Dosage: 30 MG, QD
     Route: 065
     Dates: end: 2016
  2. ABILIFY [Suspect]
     Active Substance: ARIPIPRAZOLE
     Indication: MAJOR DEPRESSION
  3. ABILIFY [Suspect]
     Active Substance: ARIPIPRAZOLE
     Indication: ANXIETY
     Dosage: 20 MG, QD
     Route: 065
     Dates: start: 2012

REACTIONS (11)
  - Suicidal ideation [Recovered/Resolved]
  - Economic problem [Unknown]
  - Obsessive-compulsive disorder [Recovered/Resolved]
  - Eating disorder [Recovered/Resolved]
  - Product use in unapproved indication [Unknown]
  - Compulsive shopping [Recovered/Resolved]
  - Gambling disorder [Recovered/Resolved]
  - Divorced [Unknown]
  - Psychiatric symptom [Unknown]
  - Compulsive sexual behaviour [Recovered/Resolved]
  - Suicide attempt [Recovered/Resolved]

NARRATIVE: CASE EVENT DATE: 2012
